FAERS Safety Report 26136783 (Version 1)
Quarter: 2025Q4

REPORT INFORMATION
  Report Type: Spontaneous
  Country: US (occurrence: US)
  Receive Date: 20251209
  Receipt Date: 20251209
  Transmission Date: 20260118
  Serious: No
  Sender: INSUD PHARMA
  Company Number: US-INSUD PHARMA-2512US10117

PATIENT

DRUGS (1)
  1. TESTOSTERONE CYPIONATE [Suspect]
     Active Substance: TESTOSTERONE CYPIONATE
     Indication: Androgen deficiency
     Dosage: 1 ML WEEKLY
     Route: 030
     Dates: start: 2024

REACTIONS (11)
  - Peripheral swelling [Recovering/Resolving]
  - Pain in extremity [Recovering/Resolving]
  - Pyrexia [Unknown]
  - Feeling cold [Unknown]
  - Illness [Unknown]
  - Groin pain [Recovering/Resolving]
  - Erythema [Recovering/Resolving]
  - Burning sensation [Recovered/Resolved]
  - Suspected product contamination [Unknown]
  - Incorrect route of product administration [Unknown]
  - Product use issue [Unknown]

NARRATIVE: CASE EVENT DATE: 20240101
